FAERS Safety Report 14813132 (Version 1)
Quarter: 2018Q2

REPORT INFORMATION
  Report Type: Spontaneous
  Country: US (occurrence: US)
  Receive Date: 20180426
  Receipt Date: 20180426
  Transmission Date: 20180711
  Serious: No
  Sender: FDA-Public Use
  Company Number: US-MALLINCKRODT-T201702932

PATIENT
  Sex: Female

DRUGS (1)
  1. RESTORIL [Suspect]
     Active Substance: TEMAZEPAM
     Indication: PAIN
     Dosage: 30 MG
     Route: 065
     Dates: start: 2017

REACTIONS (4)
  - Lacrimation increased [Unknown]
  - Somnolence [Unknown]
  - Feeling abnormal [Unknown]
  - Limb discomfort [Unknown]
